FAERS Safety Report 5840165-8 (Version None)
Quarter: 2008Q3

REPORT INFORMATION
  Report Type: 
  Country: None (occurrence: None)
  Receive Date: 20080808
  Receipt Date: 20080808
  Transmission Date: 20090109
  Serious: Yes (Life-Threatening, Hospitalization, Disabling)
  Sender: FDA-Public Use
  Company Number: None

PATIENT
  Age: 71 Year
  Sex: Female
  Weight: 117.9352 kg

DRUGS (1)
  1. DIGOXIN [Suspect]
     Indication: HEART RATE ABNORMAL
     Dosage: 0.125 E MONDAY, WED, + FRI 2 TAB ALL OTHER DAY
     Dates: start: 20050101, end: 20070601

REACTIONS (2)
  - PHARMACEUTICAL PRODUCT COMPLAINT [None]
  - THERAPEUTIC AGENT TOXICITY [None]
